FAERS Safety Report 11796213 (Version 1)
Quarter: 2015Q4

REPORT INFORMATION
  Report Type: Spontaneous
  Country: US (occurrence: US)
  Receive Date: 20151203
  Receipt Date: 20151203
  Transmission Date: 20160305
  Serious: No
  Sender: FDA-Public Use
  Company Number: US-BAYER-2015-481234

PATIENT
  Age: 57 Year
  Sex: Female
  Weight: 74.83 kg

DRUGS (1)
  1. MIRALAX [Suspect]
     Active Substance: POLYETHYLENE GLYCOL 3350
     Indication: COLONOSCOPY
     Dosage: 117 GRAMS OF MIRALAX WITH HALF OF A GALLON OF GATORADE
     Route: 048

REACTIONS (2)
  - Intercepted drug prescribing error [None]
  - Off label use [None]
